FAERS Safety Report 22085283 (Version 2)
Quarter: 2023Q1

REPORT INFORMATION
  Report Type: Report from Study
  Country: PH (occurrence: PH)
  Receive Date: 20230310
  Receipt Date: 20230315
  Transmission Date: 20230418
  Serious: Yes (Death, Other)
  Sender: FDA-Public Use
  Company Number: PH-TAKEDA-2023TUS023684

PATIENT
  Age: 57 Year
  Sex: Female

DRUGS (1)
  1. BRENTUXIMAB VEDOTIN [Suspect]
     Active Substance: BRENTUXIMAB VEDOTIN
     Indication: Anaplastic large cell lymphoma T- and null-cell types refractory
     Dosage: 100 MILLIGRAM
     Route: 042
     Dates: start: 20230118

REACTIONS (1)
  - Death [Fatal]

NARRATIVE: CASE EVENT DATE: 20230311
